FAERS Safety Report 9350270 (Version 4)
Quarter: 2013Q3

REPORT INFORMATION
  Report Type: Spontaneous
  Country: US (occurrence: US)
  Receive Date: 20130617
  Receipt Date: 20130820
  Transmission Date: 20140515
  Serious: No
  Sender: FDA-Public Use
  Company Number: US-009507513-1306USA006781

PATIENT
  Sex: Male

DRUGS (6)
  1. PEG-INTRON [Suspect]
     Indication: HEPATITIS C
     Dosage: REDIPEN
     Route: 058
     Dates: start: 20130524
  2. REBETOL [Suspect]
     Indication: HEPATITIS C
     Dosage: 4 DF, QD
     Route: 048
     Dates: start: 20130524, end: 2013
  3. REBETOL [Suspect]
     Dosage: 1 DF, QD
     Route: 048
     Dates: start: 2013, end: 2013
  4. REBETOL [Suspect]
     Dosage: 2 DF, QD
     Route: 048
     Dates: start: 2013, end: 2013
  5. REBETOL [Suspect]
     Dosage: 3 DF, QD
     Route: 048
     Dates: start: 2013, end: 2013
  6. REBETOL [Suspect]
     Dosage: 4 DF, QD
     Route: 048
     Dates: start: 2013

REACTIONS (4)
  - Muscle spasms [Unknown]
  - Injection site reaction [Unknown]
  - Dyspnoea [Unknown]
  - Dyspnoea [Unknown]
